FAERS Safety Report 8532537-8 (Version None)
Quarter: 2012Q3

REPORT INFORMATION
  Report Type: 
  Country: None (occurrence: None)
  Receive Date: 20120724
  Receipt Date: 20120717
  Transmission Date: 20120928
  Serious: No
  Sender: FDA-Public Use
  Company Number: US-PFIZER INC-2012173587

PATIENT
  Sex: Male

DRUGS (1)
  1. NICOTROL [Suspect]
     Dosage: UNK

REACTIONS (2)
  - PRODUCT QUALITY ISSUE [None]
  - DRUG EFFECT DECREASED [None]
